FAERS Safety Report 8265640-0 (Version None)
Quarter: 2012Q2

REPORT INFORMATION
  Report Type: 
  Country: None (occurrence: None)
  Receive Date: 20120406
  Receipt Date: 20120323
  Transmission Date: 20120825
  Serious: Yes (Other)
  Sender: FDA-Public Use
  Company Number: CHPA2012US005711

PATIENT
  Age: 46 Year
  Sex: Female

DRUGS (1)
  1. EXCEDRIN EXTRA STRENGTH TABLETS [Suspect]
     Dosage: 2 DF, EVERY 2 TO 4 HOURS DAILY
     Route: 048
     Dates: start: 19830101

REACTIONS (5)
  - NEPHROLITHIASIS [None]
  - DRUG ABUSE [None]
  - FEELING COLD [None]
  - INAPPROPRIATE SCHEDULE OF DRUG ADMINISTRATION [None]
  - SOFT TISSUE INJURY [None]
